FAERS Safety Report 8984768 (Version 2)
Quarter: 2013Q4

REPORT INFORMATION
  Report Type: Spontaneous
  Country: US (occurrence: None)
  Receive Date: 20121214
  Receipt Date: 20131008
  Transmission Date: 20140711
  Serious: Yes (Hospitalization, Other)
  Sender: FDA-Public Use
  Company Number: 2012P1066608

PATIENT
  Age: 62 Year
  Sex: Male
  Weight: 72.7 kg

DRUGS (8)
  1. INFUMORPH [Suspect]
     Dates: start: 2009, end: 201210
  2. BACLOFEN [Suspect]
     Dates: start: 201210
  3. CLONIDINE [Suspect]
     Dates: start: 201210
  4. BACLOFEN [Concomitant]
  5. VALIUM [Concomitant]
  6. OXYBUTYNIN [Concomitant]
  7. IMIPRAMINE [Concomitant]
  8. MORPHINE [Concomitant]

REACTIONS (15)
  - Accidental overdose [None]
  - Device malfunction [None]
  - Memory impairment [None]
  - Abnormal behaviour [None]
  - Confusional state [None]
  - Speech disorder [None]
  - Cough [None]
  - Fall [None]
  - Excoriation [None]
  - Verbal abuse [None]
  - Renal failure acute [None]
  - Hypophagia [None]
  - Rhabdomyolysis [None]
  - Mental status changes [None]
  - Blood pressure decreased [None]
